FAERS Safety Report 11639082 (Version 1)
Quarter: 2015Q4

REPORT INFORMATION
  Report Type: Other
  Country: GB (occurrence: GB)
  Receive Date: 20151019
  Receipt Date: 20151019
  Transmission Date: 20160304
  Serious: Yes (Other)
  Sender: FDA-Public Use
  Company Number: GB-CIPLA LTD.-2015GB07973

PATIENT

DRUGS (3)
  1. VALSARTAN. [Concomitant]
     Active Substance: VALSARTAN
     Indication: HYPERTENSION
     Dosage: 80 MG, TAKEN  FOR YEARS
     Route: 065
  2. CARBAMAZEPINE. [Suspect]
     Active Substance: CARBAMAZEPINE
     Indication: MOOD ALTERED
     Dosage: 700 MG (300 MG DURING DAY 400MG  AT NIGHT STARTED OVER 30 YEARS AGO)
     Route: 065
  3. AMLODIPINE [Suspect]
     Active Substance: AMLODIPINE BESYLATE
     Indication: HYPERTENSION
     Dosage: IN THE MORNING. STARTED 2-3 MONHS AGO, 5 MG, QD
     Route: 065

REACTIONS (2)
  - Enuresis [Not Recovered/Not Resolved]
  - Depressed mood [Not Recovered/Not Resolved]
